FAERS Safety Report 23743370 (Version 1)
Quarter: 2024Q2

REPORT INFORMATION
  Report Type: Spontaneous
  Country: US (occurrence: US)
  Receive Date: 20240415
  Receipt Date: 20240415
  Transmission Date: 20240715
  Serious: Yes (Hospitalization)
  Sender: FDA-Public Use
  Company Number: US-LANTHEUS-LMI-2024-00431

PATIENT
  Age: 39 Year
  Sex: Male

DRUGS (1)
  1. DEFINITY [Suspect]
     Active Substance: PERFLUTREN
     Indication: Stress echocardiogram
     Dosage: 2 MILLILITRE (1.3 ML DEFINITY PREPARED IN 8.7 ML NORMAL SALINE)
     Route: 042
     Dates: start: 20240405, end: 20240405

REACTIONS (8)
  - Portal venous gas [Unknown]
  - Gastrointestinal wall thickening [Unknown]
  - Infection [Unknown]
  - Inflammation [Unknown]
  - Resuscitation [Unknown]
  - Back pain [Recovered/Resolved]
  - Flank pain [Recovered/Resolved]
  - Pain [Recovered/Resolved]

NARRATIVE: CASE EVENT DATE: 20240405
